FAERS Safety Report 7096946-9 (Version None)
Quarter: 2010Q4

REPORT INFORMATION
  Report Type: 
  Country: None (occurrence: None)
  Receive Date: 20101111
  Receipt Date: 20101105
  Transmission Date: 20110411
  Serious: Yes (Death)
  Sender: FDA-Public Use
  Company Number: GB-TEVA-254409ISR

PATIENT
  Age: 63 Year
  Sex: Female
  Weight: 65 kg

DRUGS (4)
  1. WARFARIN [Suspect]
  2. FLUOXETINE [Suspect]
     Indication: DEPRESSION
     Route: 048
     Dates: start: 20090114, end: 20100226
  3. TRYPTOPHAN, L- [Suspect]
     Indication: DEPRESSION
     Dates: start: 20090114, end: 20100225
  4. SINEMET [Suspect]
     Indication: PARKINSONISM
     Route: 048
     Dates: start: 20100115, end: 20100225

REACTIONS (7)
  - AGITATION [None]
  - BALANCE DISORDER [None]
  - DECREASED APPETITE [None]
  - DIZZINESS [None]
  - DRUG TOXICITY [None]
  - FEELING ABNORMAL [None]
  - WEIGHT DECREASED [None]
